FAERS Safety Report 9803605 (Version 1)
Quarter: 2014Q1

REPORT INFORMATION
  Report Type: Spontaneous
  Country: US (occurrence: US)
  Receive Date: 20140108
  Receipt Date: 20140108
  Transmission Date: 20141002
  Serious: No
  Sender: FDA-Public Use
  Company Number: US-GLAXOSMITHKLINE-A1011878A

PATIENT
  Age: 75 Year
  Sex: Male

DRUGS (11)
  1. LOVAZA [Suspect]
     Indication: PRODUCT USED FOR UNKNOWN INDICATION
     Dosage: 4CAP PER DAY
     Route: 048
     Dates: start: 2008
  2. INFLUENZA VACCINE [Concomitant]
  3. PNEUMONIA SHOT [Concomitant]
  4. CORTISONE INJECTION [Concomitant]
  5. LOVAZA [Concomitant]
  6. ONE A DAY VITAMINS [Concomitant]
  7. BABY ASPIRIN [Concomitant]
  8. PRESERVISION [Concomitant]
  9. LIPITOR [Concomitant]
  10. COENZYME Q10 [Concomitant]
  11. OMEPRAZOLE [Concomitant]

REACTIONS (5)
  - Retching [Not Recovered/Not Resolved]
  - Product quality issue [Unknown]
  - Cough [Unknown]
  - Dysphagia [Unknown]
  - Product quality issue [Unknown]
